FAERS Safety Report 9832592 (Version 2)
Quarter: 2014Q2

REPORT INFORMATION
  Report Type: Spontaneous
  Country: US (occurrence: US)
  Receive Date: 20140121
  Receipt Date: 20140425
  Transmission Date: 20141212
  Serious: Yes (Other)
  Sender: FDA-Public Use
  Company Number: US-BAYER-2014-009316

PATIENT
  Sex: 0

DRUGS (3)
  1. XOFIGO [Suspect]
     Indication: PROSTATE CANCER METASTATIC
     Dosage: 103-107 ?CI Q4WKS
     Route: 042
     Dates: start: 20131011, end: 20131011
  2. XOFIGO [Suspect]
     Indication: METASTASES TO BONE
     Dosage: 103-107 ?CI Q4WKS
     Route: 042
     Dates: start: 20131113, end: 20131113
  3. XOFIGO [Suspect]
     Indication: PROSTATE CANCER METASTATIC
     Dosage: 103-107 ?CI Q4WKS
     Route: 042
     Dates: start: 20131211, end: 20131211

REACTIONS (1)
  - Brain mass [None]
